FAERS Safety Report 6824501-1 (Version None)
Quarter: 2010Q3

REPORT INFORMATION
  Report Type: 
  Country: None (occurrence: None)
  Receive Date: 20100708
  Receipt Date: 20061026
  Transmission Date: 20110219
  Serious: No
  Sender: FDA-Public Use
  Company Number: US-PFIZER INC-2006133168

PATIENT
  Sex: Male
  Weight: 90.72 kg

DRUGS (11)
  1. CHANTIX [Suspect]
     Indication: SMOKING CESSATION THERAPY
     Dates: start: 20060101
  2. ALL OTHER THERAPEUTIC PRODUCTS [Concomitant]
     Indication: HIV TEST POSITIVE
  3. EMTRICITABINE [Concomitant]
     Indication: HIV TEST POSITIVE
  4. VIDEX [Concomitant]
     Indication: HIV TEST POSITIVE
  5. SEROQUEL [Concomitant]
     Indication: SLEEP DISORDER
  6. TESTOSTERONE CIPIONATE [Concomitant]
     Indication: BLOOD TESTOSTERONE DECREASED
  7. TESTOSTERONE CIPIONATE [Concomitant]
     Indication: HIV TEST POSITIVE
  8. VITAMIN B-12 [Concomitant]
     Indication: FATIGUE
  9. VITAMIN B-12 [Concomitant]
     Indication: HIV TEST POSITIVE
  10. DHEA [Concomitant]
  11. YOHIMBE BARK [Concomitant]

REACTIONS (2)
  - PAIN [None]
  - SWELLING [None]
